FAERS Safety Report 6719846-X (Version None)
Quarter: 2010Q2

REPORT INFORMATION
  Report Type: 
  Country: None (occurrence: None)
  Receive Date: 20100511
  Receipt Date: 20100429
  Transmission Date: 20101027
  Serious: Yes (Hospitalization)
  Sender: FDA-Public Use
  Company Number: PHHO2009US13695

PATIENT
  Sex: Male
  Weight: 77.098 kg

DRUGS (13)
  1. AVASTIN [Suspect]
     Indication: GLIOBLASTOMA MULTIFORME
     Dosage: 1100 MG (10 MG/KG), UNK
     Route: 042
     Dates: start: 20091015, end: 20091015
  2. AVASTIN [Suspect]
     Dosage: 950 MG (10 MG/KG), UNK
     Route: 042
     Dates: start: 20091029, end: 20091112
  3. AVASTIN [Suspect]
     Dosage: UNK
     Route: 042
     Dates: end: 20100211
  4. TEMOZOLOMIDE [Suspect]
     Indication: GLIOBLASTOMA MULTIFORME
     Dosage: 160 MG (75 MG/M2), DAILY
     Route: 048
     Dates: start: 20091015, end: 20091125
  5. COUMADIN [Concomitant]
     Dosage: UNK
     Dates: start: 20100213, end: 20100309
  6. ELAVIL [Concomitant]
     Dosage: 50 MG
     Route: 048
  7. PANTOPRAZOLE [Concomitant]
     Dosage: 40 MG
     Dates: start: 20100309
  8. DEXAMETHASONE [Concomitant]
  9. FAMOTIDINE [Concomitant]
  10. TEMAZEPAM [Concomitant]
  11. COMPAZINE [Concomitant]
  12. BACTRIM [Concomitant]
  13. REMERON [Concomitant]

REACTIONS (13)
  - ASTHENIA [None]
  - DEHYDRATION [None]
  - DEPRESSED LEVEL OF CONSCIOUSNESS [None]
  - FAILURE TO THRIVE [None]
  - FATIGUE [None]
  - MALIGNANT NEOPLASM PROGRESSION [None]
  - MENTAL STATUS CHANGES [None]
  - MOBILITY DECREASED [None]
  - MUSCULAR WEAKNESS [None]
  - NAUSEA [None]
  - SOMNOLENCE [None]
  - VOMITING [None]
  - WEIGHT DECREASED [None]
